FAERS Safety Report 11712869 (Version 1)
Quarter: 2015Q4

REPORT INFORMATION
  Report Type: Spontaneous
  Country: US (occurrence: US)
  Receive Date: 20151104
  Receipt Date: 20151104
  Transmission Date: 20160304
  Serious: No
  Sender: FDA-Public Use
  Company Number: US-ELI_LILLY_AND_COMPANY-US201104007787

PATIENT
  Age: 55 Year
  Sex: Female

DRUGS (2)
  1. FORTEO [Suspect]
     Active Substance: TERIPARATIDE
     Dosage: 20 UG, QD
     Dates: end: 20110520
  2. FORTEO [Suspect]
     Active Substance: TERIPARATIDE
     Indication: OSTEOPOROSIS
     Dosage: 20 UG, QD
     Dates: start: 20110420, end: 20110421

REACTIONS (7)
  - Asthenia [Unknown]
  - Coeliac disease [Unknown]
  - Presyncope [Unknown]
  - Mobility decreased [Recovering/Resolving]
  - Vomiting [Unknown]
  - Migraine [Unknown]
  - Malaise [Unknown]

NARRATIVE: CASE EVENT DATE: 201104
